FAERS Safety Report 20689789 (Version 1)
Quarter: 2022Q2

REPORT INFORMATION
  Report Type: Spontaneous
  Country: US (occurrence: US)
  Receive Date: 20220408
  Receipt Date: 20220408
  Transmission Date: 20220720
  Serious: Yes (Other)
  Sender: FDA-Public Use
  Company Number: US-drreddys-LIT/USA/22/0148631

PATIENT
  Age: 46 Year
  Sex: Female

DRUGS (4)
  1. DOBUTAMINE HYDROCHLORIDE [Suspect]
     Active Substance: DOBUTAMINE HYDROCHLORIDE
     Indication: Product used for unknown indication
     Dosage: 5 ?G/KG/MINUTE
     Route: 042
  2. DOBUTAMINE HYDROCHLORIDE [Suspect]
     Active Substance: DOBUTAMINE HYDROCHLORIDE
     Dosage: THE DOSE WAS SUBSEQUENTLY INCREASED AT 3-MINUTE INTERVALS IN A GRADED FASHION, FROM 5 TO 10 TO 20 T
     Route: 042
  3. DOBUTAMINE HYDROCHLORIDE [Suspect]
     Active Substance: DOBUTAMINE HYDROCHLORIDE
     Dosage: THE DOSE WAS SUBSEQUENTLY INCREASED AT 3-MINUTE INTERVALS IN A GRADED FASHION, FROM 5 TO 10 TO 20 T
     Route: 042
  4. DOBUTAMINE HYDROCHLORIDE [Suspect]
     Active Substance: DOBUTAMINE HYDROCHLORIDE
     Dosage: THE DOSE WAS SUBSEQUENTLY INCREASED AT 3-MINUTE INTERVALS IN A GRADED FASHION, FROM 5 TO 10 TO 20 T
     Route: 042

REACTIONS (1)
  - Ventricular hypokinesia [Unknown]
